FAERS Safety Report 9519971 (Version 2)
Quarter: 2013Q4

REPORT INFORMATION
  Report Type: Report from Study
  Country: GB (occurrence: GB)
  Receive Date: 20130912
  Receipt Date: 20131104
  Transmission Date: 20140711
  Serious: Yes (Other)
  Sender: FDA-Public Use
  Company Number: GB-BRISTOL-MYERS SQUIBB COMPANY-19366939

PATIENT
  Age: 11 Year
  Sex: Male

DRUGS (2)
  1. DASATINIB [Suspect]
     Indication: ACUTE LYMPHOCYTIC LEUKAEMIA
     Route: 048
     Dates: start: 20130813, end: 20130829
  2. METOCLOPRAMIDE [Concomitant]
     Dates: start: 20130812

REACTIONS (1)
  - Personality change [Recovered/Resolved with Sequelae]
